FAERS Safety Report 10417878 (Version 1)
Quarter: 2014Q2

REPORT INFORMATION
  Report Type: Spontaneous
  Country: US (occurrence: None)
  Receive Date: 20140609
  Receipt Date: 20140609
  Transmission Date: 20141212
  Serious: No
  Sender: FDA-Public Use
  Company Number: 2014TUS001824

PATIENT
  Age: 53 Year
  Sex: Male

DRUGS (1)
  1. BRINTELLIX [Suspect]
     Indication: DEPRESSION
     Route: 048
     Dates: start: 20140307, end: 20140309

REACTIONS (3)
  - Fatigue [None]
  - Nausea [None]
  - Diarrhoea [None]
